FAERS Safety Report 18382964 (Version 1)
Quarter: 2020Q4

REPORT INFORMATION
  Report Type: Spontaneous
  Country: JP (occurrence: JP)
  Receive Date: 20201014
  Receipt Date: 20201014
  Transmission Date: 20210114
  Serious: Yes (Other)
  Sender: FDA-Public Use
  Company Number: JP-EISAI MEDICAL RESEARCH-EC-2020-081714

PATIENT
  Age: 71 Year
  Sex: Female

DRUGS (9)
  1. LENVATINIB [Suspect]
     Active Substance: LENVATINIB
     Route: 048
  2. LENVATINIB [Suspect]
     Active Substance: LENVATINIB
     Indication: PAPILLARY THYROID CANCER
     Route: 048
  3. METGLUCO [Concomitant]
     Active Substance: METFORMIN HYDROCHLORIDE
     Indication: DIABETES MELLITUS
     Dosage: DOSE AND FREQUENCY UNKNOWN
     Route: 048
  4. BASEN [Concomitant]
     Indication: DIABETES MELLITUS
     Dosage: DOSE AND FREQUENCY UNKNOWN
     Route: 065
  5. TENORMIN [Concomitant]
     Active Substance: ATENOLOL
     Indication: HYPERTENSION
     Dosage: DOSE AND FREQUENCY UNKNOWN
     Route: 048
  6. LENVATINIB [Suspect]
     Active Substance: LENVATINIB
     Route: 048
  7. EQUA [Concomitant]
     Active Substance: VILDAGLIPTIN
     Indication: DIABETES MELLITUS
     Dosage: DOSE AND FREQUENCY UNKNOWN
     Route: 048
  8. CRESTOR [Concomitant]
     Active Substance: ROSUVASTATIN CALCIUM
     Indication: HYPERTENSION
     Dosage: DOSE AND FREQUENCY UNKNOWN
     Route: 048
  9. LENVATINIB [Suspect]
     Active Substance: LENVATINIB
     Route: 048

REACTIONS (4)
  - Diarrhoea [Unknown]
  - Cardiac failure acute [Recovering/Resolving]
  - Hypertension [Unknown]
  - Decreased appetite [Unknown]
